FAERS Safety Report 7017066-5 (Version None)
Quarter: 2010Q3

REPORT INFORMATION
  Report Type: 
  Country: None (occurrence: None)
  Receive Date: 20100927
  Receipt Date: 20100921
  Transmission Date: 20110219
  Serious: No
  Sender: FDA-Public Use
  Company Number: US-PFIZER INC-2010120583

PATIENT
  Sex: Female
  Weight: 16.327 kg

DRUGS (1)
  1. AZITHROMYCIN [Suspect]
     Indication: OROPHARYNGEAL PAIN
     Dosage: UNK
     Route: 048
     Dates: start: 20100917, end: 20100917

REACTIONS (2)
  - ABDOMINAL PAIN UPPER [None]
  - RASH [None]
